FAERS Safety Report 6765502-1 (Version None)
Quarter: 2010Q2

REPORT INFORMATION
  Report Type: 
  Country: None (occurrence: None)
  Receive Date: 20100611
  Receipt Date: 20100511
  Transmission Date: 20101027
  Serious: No
  Sender: FDA-Public Use
  Company Number: US-BAYER-201015520BCC

PATIENT
  Age: 53 Year
  Sex: Female
  Weight: 113 kg

DRUGS (5)
  1. ALEVE (CAPLET) [Suspect]
     Indication: DRUG USE FOR UNKNOWN INDICATION
     Route: 048
  2. ALPRAZOLAM [Concomitant]
     Route: 065
  3. FISH OIL [Concomitant]
     Route: 065
  4. NIASPAN [Concomitant]
     Route: 065
  5. ASPIRIN [Concomitant]
     Route: 065

REACTIONS (1)
  - HYPERSOMNIA [None]
